FAERS Safety Report 17279157 (Version 6)
Quarter: 2021Q4

REPORT INFORMATION
  Report Type: Spontaneous
  Country: US (occurrence: US)
  Receive Date: 20200116
  Receipt Date: 20211027
  Transmission Date: 20220303
  Serious: Yes (Hospitalization, Other)
  Sender: FDA-Public Use
  Company Number: US-PFIZER INC-2020018456

PATIENT
  Age: 55 Year
  Sex: Female
  Weight: 110.2 kg

DRUGS (5)
  1. LYRICA [Suspect]
     Active Substance: PREGABALIN
     Indication: Neuralgia
     Dosage: 75 MG, UNK (75 MG (3))
     Dates: start: 20170116
  2. LYRICA [Suspect]
     Active Substance: PREGABALIN
     Indication: Burning sensation
     Dosage: 75 MG CAPSULE (1 TO 3  CAPSULES AS NEEDED 3 TIMES A DAY)
     Route: 048
  3. LYRICA [Suspect]
     Active Substance: PREGABALIN
     Indication: Spinal stenosis
     Dosage: 75 MG, AS NEEDED (1 CAPSULE AS NEEDED 3 TIMES A DAY)
     Route: 048
  4. LYRICA [Suspect]
     Active Substance: PREGABALIN
     Dosage: 75 MG, THREE TIMES A DAY
     Dates: start: 20171116
  5. LYRICA [Suspect]
     Active Substance: PREGABALIN
     Dosage: UNK
     Dates: start: 20180301

REACTIONS (3)
  - Paralysis [Not Recovered/Not Resolved]
  - Spinal stenosis [Unknown]
  - Prescribed overdose [Unknown]

NARRATIVE: CASE EVENT DATE: 20171116
